FAERS Safety Report 8615961-4 (Version None)
Quarter: 2012Q3

REPORT INFORMATION
  Report Type: 
  Country: None (occurrence: None)
  Receive Date: 20120823
  Receipt Date: 20120731
  Transmission Date: 20120928
  Serious: No
  Sender: FDA-Public Use
  Company Number: US-009507513-1208USA000501

PATIENT

DRUGS (1)
  1. JANUMET XR [Suspect]
     Indication: TYPE 2 DIABETES MELLITUS
     Dosage: 50/1000,2 DF  IN THE EVENING
     Route: 048

REACTIONS (2)
  - SLEEP DISORDER [None]
  - PAIN IN EXTREMITY [None]
